FAERS Safety Report 4607487-X (Version None)
Quarter: 2005Q1

REPORT INFORMATION
  Report Type: 
  Country: None (occurrence: None)
  Receive Date: 20050314
  Receipt Date: 20050209
  Transmission Date: 20050727
  Serious: Yes (Hospitalization, Other)
  Sender: FDA-Public Use
  Company Number: US-BRISTOL-MYERS SQUIBB COMPANY-12856522

PATIENT
  Age: 3 Decade
  Sex: Male
  Weight: 62 kg

DRUGS (5)
  1. ABILIFY [Suspect]
     Indication: PSYCHOTIC DISORDER
     Route: 048
     Dates: start: 20040202, end: 20040824
  2. ZOCOR [Concomitant]
     Dates: start: 20040901
  3. LITHIUM [Concomitant]
     Dates: start: 20040901
  4. INSULIN [Concomitant]
     Dates: start: 20040801
  5. RISPERIDONE [Concomitant]
     Dates: start: 20040901

REACTIONS (6)
  - BLOOD CHOLESTEROL INCREASED [None]
  - BLOOD TRIGLYCERIDES INCREASED [None]
  - DIABETES MELLITUS INSULIN-DEPENDENT [None]
  - DIABETIC KETOACIDOSIS [None]
  - LOW DENSITY LIPOPROTEIN INCREASED [None]
  - WEIGHT INCREASED [None]
